FAERS Safety Report 8503206-5 (Version None)
Quarter: 2012Q3

REPORT INFORMATION
  Report Type: 
  Country: None (occurrence: None)
  Receive Date: 20120711
  Receipt Date: 20120709
  Transmission Date: 20120928
  Serious: Yes (Other)
  Sender: FDA-Public Use
  Company Number: NG-BAYER-2012-067912

PATIENT

DRUGS (4)
  1. MODURETIC 5-50 [Concomitant]
  2. ASPIRIN [Suspect]
     Indication: PROPHYLAXIS
     Dosage: 75 MG, UNK
     Route: 048
  3. AUGMENTIN '125' [Concomitant]
  4. ASCORBIC ACID [Concomitant]

REACTIONS (3)
  - ASTHENOPIA [None]
  - CORNEAL BLEEDING [None]
  - EYE SWELLING [None]
